FAERS Safety Report 5609624-7 (Version None)
Quarter: 2008Q1

REPORT INFORMATION
  Report Type: 
  Country: None (occurrence: None)
  Receive Date: 20080131
  Receipt Date: 20080128
  Transmission Date: 20080703
  Serious: Yes (Other)
  Sender: FDA-Public Use
  Company Number: A0705586A

PATIENT
  Age: 56 Year
  Sex: Male

DRUGS (7)
  1. ONDANSETRON [Suspect]
     Indication: PROPHYLAXIS OF NAUSEA AND VOMITING
     Dosage: 8MG AS REQUIRED
     Route: 048
     Dates: start: 20080120
  2. RADIATION [Concomitant]
  3. LISINOPRIL [Concomitant]
  4. SOTALOL HYDROCHLORIDE [Concomitant]
  5. LIPITOR [Concomitant]
  6. WARFARIN SODIUM [Concomitant]
  7. ASPIRIN [Concomitant]

REACTIONS (2)
  - ATRIAL FIBRILLATION [None]
  - MYOCARDIAL INFARCTION [None]
